FAERS Safety Report 6530473-X (Version None)
Quarter: 2010Q1

REPORT INFORMATION
  Report Type: 
  Country: None (occurrence: None)
  Receive Date: 20100106
  Receipt Date: 20100106
  Transmission Date: 20100710
  Serious: Yes (Other)
  Sender: FDA-Public Use
  Company Number: None

PATIENT
  Age: 39 Year
  Sex: Male
  Weight: 95.2554 kg

DRUGS (1)
  1. LIALDA [Suspect]
     Indication: COLITIS ULCERATIVE
     Dosage: 2 PILLS DAILY
     Dates: start: 20090901, end: 20091101

REACTIONS (3)
  - DYSPNOEA [None]
  - HEART RATE IRREGULAR [None]
  - RASH [None]
